FAERS Safety Report 8132531-5 (Version None)
Quarter: 2012Q1

REPORT INFORMATION
  Report Type: 
  Country: None (occurrence: None)
  Receive Date: 20120208
  Receipt Date: 20120124
  Transmission Date: 20120608
  Serious: Yes (Other)
  Sender: FDA-Public Use
  Company Number: 2012BN000045

PATIENT
  Age: 11 Month
  Sex: Female

DRUGS (6)
  1. ETOPOSIDE [Concomitant]
  2. MELPHALAN HYDROCHLORIDE [Suspect]
     Indication: RETINOBLASTOMA
     Dosage: IART
     Route: 013
  3. HEPARIN [Concomitant]
  4. CARBOPLATIN [Concomitant]
  5. VINCRISTINE [Concomitant]
  6. ANESTHETICS, GENERAL [Concomitant]

REACTIONS (3)
  - ERYTHEMA [None]
  - RETINAL DETACHMENT [None]
  - EPISTAXIS [None]
